FAERS Safety Report 11610772 (Version 1)
Quarter: 2015Q4

REPORT INFORMATION
  Report Type: Report from Study
  Country: GR (occurrence: GR)
  Receive Date: 20151008
  Receipt Date: 20151008
  Transmission Date: 20160304
  Serious: Yes (Death, Hospitalization, Other)
  Sender: FDA-Public Use
  Company Number: GR-CELGENE-066-21880-11023129

PATIENT
  Age: 69 Year
  Sex: Male
  Weight: 76 kg

DRUGS (16)
  1. DEXAMETHASONE SODIUM PHOSPHINATE [Suspect]
     Active Substance: DEXAMETHASONE SODIUM PHOSPHATE
     Route: 065
     Dates: start: 200909, end: 200910
  2. CIPROFLOXACIN. [Concomitant]
     Active Substance: CIPROFLOXACIN
     Indication: NEUTROPENIA
  3. REVLIMID [Suspect]
     Active Substance: LENALIDOMIDE
     Indication: PLASMA CELL MYELOMA
     Route: 048
     Dates: start: 20100528, end: 20100617
  4. DEXAMETHASONE SODIUM PHOSPHINATE [Suspect]
     Active Substance: DEXAMETHASONE SODIUM PHOSPHATE
     Route: 048
     Dates: start: 20100528, end: 20100531
  5. DEXAMETHASONE SODIUM PHOSPHINATE [Suspect]
     Active Substance: DEXAMETHASONE SODIUM PHOSPHATE
     Route: 065
     Dates: start: 200806, end: 200808
  6. DEXAMETHASONE SODIUM PHOSPHINATE [Suspect]
     Active Substance: DEXAMETHASONE SODIUM PHOSPHATE
     Route: 065
     Dates: start: 200911, end: 201002
  7. ATROVENT [Concomitant]
     Active Substance: IPRATROPIUM BROMIDE
     Indication: WHEEZING
     Dosage: 1 X 3
     Route: 055
     Dates: start: 20101101, end: 20101105
  8. DEXAMETHASONE SODIUM PHOSPHINATE [Suspect]
     Active Substance: DEXAMETHASONE SODIUM PHOSPHATE
     Indication: PLASMA CELL MYELOMA
     Route: 041
     Dates: start: 20101103, end: 20101105
  9. LASIX [Concomitant]
     Active Substance: FUROSEMIDE
     Indication: PERIPHERAL SWELLING
     Dosage: 1 X 2
     Route: 041
     Dates: start: 20101103, end: 20101103
  10. DEXAMETHASONE SODIUM PHOSPHINATE [Suspect]
     Active Substance: DEXAMETHASONE SODIUM PHOSPHATE
     Route: 065
     Dates: start: 200805, end: 200806
  11. TREBON [Concomitant]
     Indication: COUGH
     Route: 048
     Dates: start: 20101012, end: 20101104
  12. ENDOXAN [Concomitant]
     Active Substance: CYCLOPHOSPHAMIDE
     Route: 065
     Dates: start: 200810, end: 200810
  13. ENDOXAN [Concomitant]
     Active Substance: CYCLOPHOSPHAMIDE
     Route: 065
     Dates: start: 200911, end: 201002
  14. REVLIMID [Suspect]
     Active Substance: LENALIDOMIDE
     Route: 048
     Dates: start: 20101103, end: 20101104
  15. ENDOXAN [Concomitant]
     Active Substance: CYCLOPHOSPHAMIDE
     Indication: PLASMA CELL MYELOMA
     Route: 055
     Dates: start: 20101103, end: 20101103
  16. CIPROFLOXACIN. [Concomitant]
     Active Substance: CIPROFLOXACIN
     Indication: PYREXIA
     Route: 041
     Dates: start: 20101103, end: 20101105

REACTIONS (4)
  - Cerebral haemorrhage [Fatal]
  - Febrile neutropenia [Recovered/Resolved]
  - Thrombocytopenia [Recovered/Resolved]
  - Pneumonia [Recovered/Resolved]

NARRATIVE: CASE EVENT DATE: 20101012
